FAERS Safety Report 21954524 (Version 2)
Quarter: 2023Q1

REPORT INFORMATION
  Report Type: Spontaneous
  Country: US (occurrence: None)
  Receive Date: 20230205
  Receipt Date: 20230328
  Transmission Date: 20230418
  Serious: No
  Sender: FDA-Public Use
  Company Number: 2023A019387

PATIENT
  Age: 71 Year
  Sex: Female
  Weight: 70 kg

DRUGS (4)
  1. FARXIGA [Suspect]
     Active Substance: DAPAGLIFLOZIN PROPANEDIOL
     Indication: Diabetes mellitus
     Route: 048
     Dates: start: 20210616, end: 20230105
  2. FARXIGA [Suspect]
     Active Substance: DAPAGLIFLOZIN PROPANEDIOL
     Indication: Renal disorder
     Route: 048
     Dates: start: 20210616, end: 20230105
  3. BYDUREON BCISE [Suspect]
     Active Substance: EXENATIDE
     Indication: Diabetes mellitus
     Route: 058
     Dates: start: 20140116
  4. BYDUREON BCISE [Suspect]
     Active Substance: EXENATIDE
     Indication: Renal disorder
     Route: 058
     Dates: start: 20140116

REACTIONS (6)
  - Skin exfoliation [Recovering/Resolving]
  - Vaginal infection [Recovering/Resolving]
  - Rash [Unknown]
  - Urinary tract disorder [Unknown]
  - Off label use [Unknown]
  - Device delivery system issue [Unknown]
